FAERS Safety Report 6026556-3 (Version None)
Quarter: 2009Q1

REPORT INFORMATION
  Report Type: 
  Country: None (occurrence: None)
  Receive Date: 20090102
  Receipt Date: 20081224
  Transmission Date: 20090719
  Serious: Yes (Death, Hospitalization, Other)
  Sender: FDA-Public Use
  Company Number: FR-ABBOTT-08P-056-0494614-00

PATIENT
  Sex: Female

DRUGS (3)
  1. LIPANTHYL [Suspect]
     Indication: HYPERCHOLESTEROLAEMIA
     Route: 048
  2. SECTRAL [Suspect]
     Indication: HYPERTENSION
     Route: 065
  3. AMLOR [Suspect]
     Indication: HYPERTENSION
     Route: 048

REACTIONS (9)
  - ACUTE RESPIRATORY DISTRESS SYNDROME [None]
  - CARDIO-RESPIRATORY ARREST [None]
  - COUGH [None]
  - EOSINOPHILIC PNEUMONIA ACUTE [None]
  - INTERSTITIAL LUNG DISEASE [None]
  - RASH MACULO-PAPULAR [None]
  - RASH VESICULAR [None]
  - RESPIRATORY ACIDOSIS [None]
  - RESPIRATORY DISORDER [None]
